FAERS Safety Report 16533634 (Version 1)
Quarter: 2019Q3

REPORT INFORMATION
  Report Type: Spontaneous
  Country: US (occurrence: US)
  Receive Date: 20190703
  Receipt Date: 20190703
  Transmission Date: 20191004
  Serious: No
  Sender: FDA-Public Use
  Company Number: None

PATIENT
  Age: 51 Year
  Sex: Female
  Weight: 58.97 kg

DRUGS (2)
  1. PROPOFOL. [Suspect]
     Active Substance: PROPOFOL
  2. PROPOFOL. [Suspect]
     Active Substance: PROPOFOL
     Dates: start: 20190328, end: 20190329

REACTIONS (2)
  - Respiratory arrest [None]
  - Muscle spasms [None]

NARRATIVE: CASE EVENT DATE: 20190328
